FAERS Safety Report 9144162 (Version 2)
Quarter: 2013Q1

REPORT INFORMATION
  Report Type: Spontaneous
  Country: US (occurrence: US)
  Receive Date: 20130306
  Receipt Date: 20130308
  Transmission Date: 20140127
  Serious: Yes (Other)
  Sender: FDA-Public Use
  Company Number: US-ABBOTT-13P-163-1055965-00

PATIENT
  Age: 85 None
  Sex: Female
  Weight: 56.3 kg

DRUGS (7)
  1. SYNTHROID [Suspect]
     Indication: HYPOTHYROIDISM
     Dates: start: 1993
  2. VITAMIN D NOS [Suspect]
     Indication: VITAMIN D DECREASED
     Dates: start: 201212, end: 201302
  3. CENTRUM [Suspect]
     Indication: VITAMIN D DECREASED
  4. CITROCAL WITH 1000 IU OF VITAMIN D [Suspect]
     Indication: VITAMIN D DECREASED
  5. VITAMIN D3 [Suspect]
     Indication: VITAMIN D DECREASED
  6. OCUVITE VITAMINS [Concomitant]
     Indication: EYE DISORDER
  7. GLUCOSAMINE [Concomitant]
     Indication: ARTHRITIS

REACTIONS (6)
  - Cartilage injury [Recovered/Resolved]
  - Vomiting [Not Recovered/Not Resolved]
  - Frequent bowel movements [Not Recovered/Not Resolved]
  - Aortic aneurysm [Not Recovered/Not Resolved]
  - Faeces discoloured [Recovered/Resolved]
  - Vitamin D decreased [Unknown]
